FAERS Safety Report 9736755 (Version 1)
Quarter: 2013Q4

REPORT INFORMATION
  Report Type: Spontaneous
  Country: FR (occurrence: FR)
  Receive Date: 20131206
  Receipt Date: 20131206
  Transmission Date: 20140711
  Serious: Yes (Other)
  Sender: FDA-Public Use
  Company Number: PHHY2013FR142218

PATIENT
  Age: 83 Year
  Sex: Female

DRUGS (3)
  1. LEPONEX [Suspect]
     Dosage: 2 DF, UNK
     Route: 048
     Dates: start: 20131003, end: 20131003
  2. ATARAX//HYDROXYZINE [Suspect]
     Dosage: 3 DF,ONCE DAILY
     Route: 048
     Dates: start: 20131003, end: 20131003
  3. AVLOCARDYL [Suspect]
     Dosage: 1 DF AT ONCE
     Route: 048
     Dates: start: 20131003, end: 20131003

REACTIONS (3)
  - Wrong drug administered [Recovered/Resolved]
  - Medication error [Recovered/Resolved]
  - Somnolence [Recovered/Resolved]
